FAERS Safety Report 21061938 (Version 1)
Quarter: 2022Q3

REPORT INFORMATION
  Report Type: Spontaneous
  Country: US (occurrence: US)
  Receive Date: 20220710
  Receipt Date: 20220710
  Transmission Date: 20221027
  Serious: No
  Sender: FDA-Public Use
  Company Number: US-TEVA-2022-US-2047319

PATIENT
  Sex: Male

DRUGS (1)
  1. LIDOCAINE [Suspect]
     Active Substance: LIDOCAINE
     Indication: Product used for unknown indication
     Dosage: (3 PATCHES DAILY, FOR 12 HOURS PER DAY
     Route: 065
     Dates: start: 2016

REACTIONS (2)
  - Pain [Unknown]
  - Device adhesion issue [Unknown]
